FAERS Safety Report 17212843 (Version 1)
Quarter: 2019Q4

REPORT INFORMATION
  Report Type: Spontaneous
  Country: US (occurrence: US)
  Receive Date: 20191230
  Receipt Date: 20191230
  Transmission Date: 20200122
  Serious: Yes (Other)
  Sender: FDA-Public Use
  Company Number: US-ALKEM LABORATORIES LIMITED-US-ALKEM-2019-03698

PATIENT
  Age: 8 Year
  Sex: Male

DRUGS (8)
  1. METHYLPREDNISOLONE. [Suspect]
     Active Substance: METHYLPREDNISOLONE
     Indication: PROGRESSIVE FACIAL HEMIATROPHY
     Dosage: UNK
     Route: 042
  2. MYCOPHENOLATE MOFETIL. [Suspect]
     Active Substance: MYCOPHENOLATE MOFETIL
     Indication: PROGRESSIVE FACIAL HEMIATROPHY
     Dosage: UNK
     Route: 065
  3. AZATHIOPRINE. [Suspect]
     Active Substance: AZATHIOPRINE
     Indication: PROGRESSIVE FACIAL HEMIATROPHY
     Dosage: UNK
     Route: 065
  4. IMMUNE GLOBULIN (IV) [Suspect]
     Active Substance: HUMAN IMMUNOGLOBULIN G
     Indication: PROGRESSIVE FACIAL HEMIATROPHY
     Dosage: UNK
     Route: 042
  5. PSORALEN [Suspect]
     Active Substance: PSORALEN
     Indication: PROGRESSIVE FACIAL HEMIATROPHY
     Dosage: UNK
     Route: 065
  6. ABATACEPT [Suspect]
     Active Substance: ABATACEPT
     Indication: PROGRESSIVE FACIAL HEMIATROPHY
     Dosage: UNK
     Route: 065
  7. HYDROXYCHLOROQUINE [Suspect]
     Active Substance: HYDROXYCHLOROQUINE
     Indication: PROGRESSIVE FACIAL HEMIATROPHY
     Dosage: UNK
     Route: 065
  8. METHOTREXATE. [Suspect]
     Active Substance: METHOTREXATE
     Indication: PROGRESSIVE FACIAL HEMIATROPHY
     Dosage: UNK
     Route: 058

REACTIONS (1)
  - Treatment failure [Unknown]
